FAERS Safety Report 4370700-0 (Version None)
Quarter: 2004Q2

REPORT INFORMATION
  Report Type: 
  Country: None (occurrence: None)
  Receive Date: 20040604
  Receipt Date: 20040525
  Transmission Date: 20050107
  Serious: Yes (Other)
  Sender: FDA-Public Use
  Company Number: PHFR2004GB02250

PATIENT
  Age: 63 Year
  Sex: Female

DRUGS (1)
  1. CLOZARIL [Suspect]
     Route: 048

REACTIONS (2)
  - FALL [None]
  - LOWER LIMB FRACTURE [None]
